FAERS Safety Report 23944013 (Version 1)
Quarter: 2024Q2

REPORT INFORMATION
  Report Type: Report from Study
  Country: IT (occurrence: IT)
  Receive Date: 20240606
  Receipt Date: 20240606
  Transmission Date: 20240716
  Serious: No
  Sender: FDA-Public Use
  Company Number: IT-SANDOZ-SDZ2023IT026618

PATIENT
  Sex: Female

DRUGS (1)
  1. OMNITROPE [Suspect]
     Active Substance: SOMATROPIN
     Indication: Product used for unknown indication
     Dosage: 0.7 MG FREQUENCY: 7/7 DAYS
     Route: 065
     Dates: start: 20221129

REACTIONS (6)
  - Product dose omission issue [Unknown]
  - Incorrect dose administered [Unknown]
  - Device occlusion [Unknown]
  - Needle issue [Unknown]
  - Device breakage [Unknown]
  - Device issue [Unknown]
